FAERS Safety Report 11518283 (Version 2)
Quarter: 2015Q4

REPORT INFORMATION
  Report Type: Spontaneous
  Country: US (occurrence: US)
  Receive Date: 20150917
  Receipt Date: 20151013
  Transmission Date: 20160304
  Serious: No
  Sender: FDA-Public Use
  Company Number: US-LEO PHARMA-236965

PATIENT
  Age: 54 Year
  Sex: Female

DRUGS (2)
  1. PICATO [Suspect]
     Active Substance: INGENOL MEBUTATE
     Indication: ACTINIC KERATOSIS
     Dates: start: 20150907, end: 20150909
  2. PICATO [Suspect]
     Active Substance: INGENOL MEBUTATE

REACTIONS (9)
  - Eye swelling [Recovered/Resolved]
  - Inappropriate schedule of drug administration [Unknown]
  - Application site erythema [Recovered/Resolved]
  - Application site swelling [Recovered/Resolved]
  - Application site pain [Not Recovered/Not Resolved]
  - Application site exfoliation [Recovered/Resolved]
  - Incorrect dose administered [Unknown]
  - Drug administration error [Unknown]
  - Application site vesicles [Recovered/Resolved]

NARRATIVE: CASE EVENT DATE: 20150907
